FAERS Safety Report 8396147-8 (Version None)
Quarter: 2012Q2

REPORT INFORMATION
  Report Type: 
  Country: None (occurrence: None)
  Receive Date: 20120530
  Receipt Date: 20120522
  Transmission Date: 20120825
  Serious: Yes (Congenital Anomaly)
  Sender: FDA-Public Use
  Company Number: US-GLAXOSMITHKLINE-A0979133A

PATIENT
  Sex: Female
  Weight: 3.2 kg

DRUGS (3)
  1. KLONOPIN [Concomitant]
     Dates: start: 19990528
  2. PAXIL [Suspect]
     Indication: PRODUCT USED FOR UNKNOWN INDICATION
     Dosage: 20MG IN THE MORNING
     Route: 064
     Dates: start: 19990528
  3. EFFEXOR [Concomitant]
     Dates: end: 19990528

REACTIONS (4)
  - ATRIAL SEPTAL DEFECT [None]
  - DERMAL CYST [None]
  - CARDIAC MURMUR [None]
  - FOETAL EXPOSURE DURING PREGNANCY [None]
